FAERS Safety Report 12808457 (Version 3)
Quarter: 2017Q4

REPORT INFORMATION
  Report Type: Spontaneous
  Country: US (occurrence: US)
  Receive Date: 20161004
  Receipt Date: 20171123
  Transmission Date: 20180320
  Serious: No
  Sender: FDA-Public Use
  Company Number: US-PFIZER INC-2016459508

PATIENT
  Age: 68 Year
  Sex: Male

DRUGS (1)
  1. TALWIN [Suspect]
     Active Substance: PENTAZOCINE LACTATE
     Indication: HEADACHE
     Dosage: UNK
     Route: 048

REACTIONS (2)
  - Visual impairment [Unknown]
  - Drug hypersensitivity [Unknown]
